FAERS Safety Report 8402308-1 (Version None)
Quarter: 2012Q2

REPORT INFORMATION
  Report Type: 
  Country: None (occurrence: None)
  Receive Date: 20120601
  Receipt Date: 20120525
  Transmission Date: 20120825
  Serious: Yes (Hospitalization)
  Sender: FDA-Public Use
  Company Number: ES-B.I. PHARMACEUTICALS,INC./RIDGEFIELD-2012-ES-00201ES

PATIENT
  Age: 85 Year
  Sex: Female

DRUGS (11)
  1. RADIOTERAPHY [Suspect]
     Indication: ENDOMETRIAL NEOPLASM
  2. PRADAXA [Suspect]
     Dosage: 220 MG
     Route: 048
     Dates: start: 20120301, end: 20120323
  3. CARASEL [Concomitant]
     Dosage: 5 MG
     Route: 048
  4. DIGOXIN [Concomitant]
     Route: 048
  5. OMEPRAZOLE [Concomitant]
     Route: 048
  6. FERROUS SULFATE TAB [Concomitant]
     Route: 048
  7. DAFLON [Concomitant]
     Route: 048
  8. PRADAXA [Suspect]
     Indication: ATRIAL FIBRILLATION
     Dosage: 110 MG
     Route: 048
     Dates: start: 20110901, end: 20120301
  9. FUROSEMIDE [Concomitant]
     Route: 048
  10. ACETAMINOPHEN [Concomitant]
     Route: 048
  11. ALDACTONA [Concomitant]
     Dosage: 25 MG
     Route: 048

REACTIONS (4)
  - HYPONATRAEMIA [None]
  - MALABSORPTION [None]
  - LOWER GASTROINTESTINAL HAEMORRHAGE [None]
  - GASTROINTESTINAL DISORDER [None]
